FAERS Safety Report 12585530 (Version 2)
Quarter: 2016Q4

REPORT INFORMATION
  Report Type: Other
  Country: JP (occurrence: JP)
  Receive Date: 20160725
  Receipt Date: 20161014
  Transmission Date: 20170207
  Serious: Yes (Hospitalization)
  Sender: FDA-Public Use
  Company Number: JP-LUPIN PHARMACEUTICALS INC.-2016-02627

PATIENT
  Age: 15 Year
  Sex: Female
  Weight: 44 kg

DRUGS (4)
  1. WARFARIN POTASSIUM [Concomitant]
     Active Substance: WARFARIN POTASSIUM
     Indication: IGA NEPHROPATHY
     Route: 065
  2. DIPYRIDAMOLE. [Concomitant]
     Active Substance: DIPYRIDAMOLE
     Indication: IGA NEPHROPATHY
     Route: 065
  3. LISINOPRIL. [Suspect]
     Active Substance: LISINOPRIL
     Indication: IGA NEPHROPATHY
     Route: 065
  4. PREDNISOLONE. [Concomitant]
     Active Substance: PREDNISOLONE
     Indication: IGA NEPHROPATHY
     Route: 065

REACTIONS (1)
  - Acute kidney injury [Recovered/Resolved]
